FAERS Safety Report 6094907-X (Version None)
Quarter: 2009Q1

REPORT INFORMATION
  Report Type: 
  Country: None (occurrence: None)
  Receive Date: 20090225
  Receipt Date: 20090218
  Transmission Date: 20090719
  Serious: Yes (Hospitalization)
  Sender: FDA-Public Use
  Company Number: 20096260

PATIENT
  Age: 31 Year
  Sex: Female

DRUGS (1)
  1. LIORESAL [Suspect]
     Indication: MUSCLE SPASTICITY
     Dosage: MCG,DAILY,INYTRATHECAL

REACTIONS (12)
  - ABNORMAL BEHAVIOUR [None]
  - CONFUSIONAL STATE [None]
  - DROOLING [None]
  - FEELING ABNORMAL [None]
  - IRRITABILITY [None]
  - LETHARGY [None]
  - LOSS OF CONSCIOUSNESS [None]
  - MENTAL STATUS CHANGES [None]
  - MOVEMENT DISORDER [None]
  - MUSCLE RIGIDITY [None]
  - OVERDOSE [None]
  - UNDERDOSE [None]
